FAERS Safety Report 11266567 (Version 3)
Quarter: 2016Q1

REPORT INFORMATION
  Report Type: Report from Study
  Country: CA (occurrence: CA)
  Receive Date: 20150713
  Receipt Date: 20160325
  Transmission Date: 20160525
  Serious: Yes (Death, Other)
  Sender: FDA-Public Use
  Company Number: PHHY2014CA054411

PATIENT
  Age: 66 Year
  Sex: Female

DRUGS (3)
  1. SANDOSTATIN LAR DEPOT [Suspect]
     Active Substance: OCTREOTIDE ACETATE
     Dosage: 30 MG, QMO
     Route: 030
     Dates: end: 2016
  2. SANDOSTATIN [Suspect]
     Active Substance: OCTREOTIDE ACETATE
     Indication: GASTROINTESTINAL ANGIODYSPLASIA HAEMORRHAGIC
     Dosage: 50 UG, TID (CONTINIOUS 2 WEEKS POST LAR)
     Route: 058
     Dates: start: 20140322, end: 201404
  3. SANDOSTATIN LAR DEPOT [Suspect]
     Active Substance: OCTREOTIDE ACETATE
     Indication: GASTROINTESTINAL ANGIODYSPLASIA HAEMORRHAGIC
     Dosage: 20 MG, QMO
     Route: 030
     Dates: start: 20140402

REACTIONS (20)
  - Heart rate decreased [Unknown]
  - Intestinal haemorrhage [Unknown]
  - Haemoglobin decreased [Unknown]
  - Fatigue [Unknown]
  - Feeding disorder [Unknown]
  - Peripheral swelling [Unknown]
  - Injection site pain [Recovered/Resolved]
  - Head injury [Unknown]
  - Generalised erythema [Recovered/Resolved]
  - Vomiting [Unknown]
  - Pain in extremity [Unknown]
  - Dizziness [Recovered/Resolved]
  - Fall [Unknown]
  - Blood pressure increased [Unknown]
  - Fear [Unknown]
  - Pruritus [Recovered/Resolved]
  - Death [Fatal]
  - Blood pressure diastolic decreased [Unknown]
  - Skin sensitisation [Unknown]
  - Product use issue [Unknown]

NARRATIVE: CASE EVENT DATE: 20140404
